FAERS Safety Report 7626115-2 (Version None)
Quarter: 2011Q3

REPORT INFORMATION
  Report Type: 
  Country: None (occurrence: None)
  Receive Date: 20110721
  Receipt Date: 20110713
  Transmission Date: 20111222
  Serious: Yes (Hospitalization)
  Sender: FDA-Public Use
  Company Number: US-BAXTER-2011BH022741

PATIENT
  Age: 61 Year
  Sex: Male

DRUGS (4)
  1. CELEXA [Suspect]
     Route: 048
     Dates: start: 20110601, end: 20110101
  2. DIANEAL [Suspect]
     Indication: PERITONEAL DIALYSIS
     Route: 033
  3. DIANEAL [Suspect]
     Indication: PRODUCT USED FOR UNKNOWN INDICATION
     Route: 033
  4. CELEXA [Suspect]
     Indication: PRODUCT USED FOR UNKNOWN INDICATION
     Route: 048
     Dates: end: 20110601

REACTIONS (1)
  - MENTAL STATUS CHANGES [None]
